FAERS Safety Report 7587564-4 (Version None)
Quarter: 2011Q3

REPORT INFORMATION
  Report Type: 
  Country: None (occurrence: None)
  Receive Date: 20110704
  Receipt Date: 20110620
  Transmission Date: 20111222
  Serious: Yes (Other)
  Sender: FDA-Public Use
  Company Number: PHHY2011US54056

PATIENT
  Sex: Female

DRUGS (4)
  1. HYDROCORTISONE [Concomitant]
  2. LODINE [Concomitant]
  3. FLUDROCORTISONE ACETATE [Concomitant]
  4. RECLAST [Suspect]
     Dosage: 5 MG
     Route: 042
     Dates: start: 20100619

REACTIONS (6)
  - FALL [None]
  - OSTEOPOROSIS [None]
  - OSTEOARTHRITIS [None]
  - ARTHROPATHY [None]
  - MUSCULOSKELETAL PAIN [None]
  - KYPHOSCOLIOSIS [None]
